FAERS Safety Report 18156102 (Version 1)
Quarter: 2020Q3

REPORT INFORMATION
  Report Type: Spontaneous
  Country: US (occurrence: US)
  Receive Date: 20200816
  Receipt Date: 20200816
  Transmission Date: 20201103
  Serious: Yes (Hospitalization)
  Sender: FDA-Public Use
  Company Number: None

PATIENT
  Sex: Male

DRUGS (1)
  1. HUMIRA [Suspect]
     Active Substance: ADALIMUMAB
     Indication: CROHN^S DISEASE
     Dosage: 40MG/0.4ML :EVERY7DAYS ;?
     Route: 058
     Dates: start: 201806

REACTIONS (5)
  - Blood potassium decreased [None]
  - Laboratory test abnormal [None]
  - Blood magnesium decreased [None]
  - Needle issue [None]
  - Device malfunction [None]
